FAERS Safety Report 23246298 (Version 2)
Quarter: 2024Q1

REPORT INFORMATION
  Report Type: Spontaneous
  Country: CN (occurrence: CN)
  Receive Date: 20231130
  Receipt Date: 20240222
  Transmission Date: 20240409
  Serious: Yes (Other)
  Sender: FDA-Public Use
  Company Number: CN-PFIZER INC-PV202300191099

PATIENT
  Age: 8 Year
  Sex: Male
  Weight: 27 kg

DRUGS (7)
  1. ZITHROMAX [Suspect]
     Active Substance: AZITHROMYCIN DIHYDRATE
     Indication: Infection
     Dosage: 0.25 G, 1X/DAY
     Route: 048
     Dates: start: 20231024
  2. ZITHROMAX [Suspect]
     Active Substance: AZITHROMYCIN DIHYDRATE
     Dosage: UNK
     Route: 048
     Dates: start: 20231025, end: 20231025
  3. CEFTRIAXONE SODIUM [Concomitant]
     Active Substance: CEFTRIAXONE SODIUM
     Indication: Infection
     Dosage: 2 G, 1X/DAY
     Route: 041
     Dates: start: 20231024, end: 20231027
  4. ALBUTEROL [Concomitant]
     Active Substance: ALBUTEROL
     Indication: Prophylaxis
     Dosage: UNK
     Dates: start: 20231024
  5. ALBUTEROL [Concomitant]
     Active Substance: ALBUTEROL
     Indication: Productive cough
  6. FLUTICASONE [Concomitant]
     Active Substance: FLUTICASONE
     Indication: Prophylaxis
     Dosage: UNK
     Dates: start: 20231024
  7. FLUTICASONE [Concomitant]
     Active Substance: FLUTICASONE
     Indication: Productive cough

REACTIONS (4)
  - Hypersensitivity [Recovering/Resolving]
  - Rash [Recovering/Resolving]
  - Rash erythematous [Recovering/Resolving]
  - Pruritus [Recovered/Resolved]

NARRATIVE: CASE EVENT DATE: 20231024
